FAERS Safety Report 9363584 (Version 1)
Quarter: 2013Q2

REPORT INFORMATION
  Report Type: Spontaneous
  Country: ES (occurrence: ES)
  Receive Date: 20130624
  Receipt Date: 20130624
  Transmission Date: 20140414
  Serious: Yes (Other)
  Sender: FDA-Public Use
  Company Number: PHHY2013ES063567

PATIENT
  Age: 64 Year
  Sex: Male

DRUGS (3)
  1. TASIGNA [Suspect]
     Indication: CHRONIC MYELOID LEUKAEMIA
     Dosage: 400 MG, DAILY
     Route: 048
     Dates: start: 200911, end: 20130206
  2. BISOPROLOL [Concomitant]
     Dosage: 2.5 MG, DAILY
     Dates: start: 201301
  3. SIMVASTATIN [Concomitant]
     Dosage: 10 MG, DAILY
     Dates: start: 201301

REACTIONS (2)
  - Ischaemic cardiomyopathy [Recovered/Resolved]
  - Angina pectoris [Recovered/Resolved]
